FAERS Safety Report 18707332 (Version 1)
Quarter: 2021Q1

REPORT INFORMATION
  Report Type: Spontaneous
  Country: FR (occurrence: FR)
  Receive Date: 20210106
  Receipt Date: 20210106
  Transmission Date: 20210419
  Serious: Yes (Hospitalization)
  Sender: FDA-Public Use
  Company Number: FR-PFIZER INC-2021001836

PATIENT
  Age: 76 Year
  Sex: Male
  Weight: 86 kg

DRUGS (18)
  1. VINCRISTINE SULFATE. [Suspect]
     Active Substance: VINCRISTINE SULFATE
     Indication: B-CELL LYMPHOMA
     Dosage: 2 MG, DAY 1 EACH TREATMENT
     Route: 042
     Dates: start: 20201006, end: 20201030
  2. PARACETAMOL B BRAUN [Concomitant]
     Active Substance: ACETAMINOPHEN
     Indication: PAIN
     Dosage: 1000 MG, CYCLIC
     Route: 042
     Dates: start: 20201006, end: 20201030
  3. OMEXEL [Concomitant]
     Active Substance: TAMSULOSIN HYDROCHLORIDE
     Indication: BENIGN PROSTATIC HYPERPLASIA
     Dosage: 0.4 MG, 1X/DAY
     Route: 048
     Dates: start: 20201002
  4. MOVICOL [Concomitant]
     Active Substance: POLYETHYLENE GLYCOL 3350\POTASSIUM CHLORIDE\SODIUM BICARBONATE\SODIUM CHLORIDE
     Indication: CONSTIPATION
     Dosage: 1 TO 2 SACHETS / DAY IN THE MORNING
     Route: 048
  5. POLARAMINE [Concomitant]
     Active Substance: DEXCHLORPHENIRAMINE MALEATE
     Indication: ALLERGY PROPHYLAXIS
     Dosage: 5 MG, CYCLIC
     Route: 042
     Dates: start: 20201006, end: 20201030
  6. DOXORUBICIN HCL [Suspect]
     Active Substance: DOXORUBICIN HYDROCHLORIDE
     Indication: B-CELL LYMPHOMA
     Dosage: 81 MG, ON DAY 1 EACH TREATMENT
     Route: 042
     Dates: start: 20201030, end: 20201030
  7. MABTHERA [Suspect]
     Active Substance: RITUXIMAB
     Indication: B-CELL LYMPHOMA
     Dosage: 610 MG, ON DAY 1 EACH TREATMENT
     Route: 042
     Dates: start: 20201006, end: 20201030
  8. SOLU?MEDROL [Concomitant]
     Active Substance: METHYLPREDNISOLONE SODIUM SUCCINATE
     Indication: ALLERGY PROPHYLAXIS
     Dosage: 64.8 MG, CYCLIC
     Route: 042
     Dates: start: 20201006, end: 20201030
  9. ZARZIO [Suspect]
     Active Substance: FILGRASTIM
     Indication: NEUTROPENIA
     Dosage: 1 DF, 1X/DAY
     Route: 058
     Dates: start: 20201011, end: 20201012
  10. PANTOPRAZOLE [Concomitant]
     Active Substance: PANTOPRAZOLE
     Indication: PEPTIC ULCER
     Dosage: 20 MG, DAILY IN THE EVENING
     Route: 048
     Dates: start: 20201002
  11. ZOPHREN [ONDANSETRON HYDROCHLORIDE] [Concomitant]
     Active Substance: ONDANSETRON
     Indication: CHEMOTHERAPY SIDE EFFECT PROPHYLAXIS
     Dosage: 8 MG, CYCLIC
     Route: 042
     Dates: start: 20201006, end: 20201030
  12. SPECIAFOLDINE [Concomitant]
     Active Substance: FOLIC ACID
     Indication: ANAEMIA PROPHYLAXIS
     Dosage: 0.4 MG, DAILY
     Route: 048
     Dates: start: 20201002
  13. ZYMAD [Concomitant]
     Active Substance: CHOLECALCIFEROL
     Indication: HYPOVITAMINOSIS
     Dosage: 1 DF, EVERY 2 WEEKS
     Route: 048
     Dates: start: 20201002
  14. ENDOXAN [CYCLOPHOSPHAMIDE MONOHYDRATE] [Suspect]
     Active Substance: CYCLOPHOSPHAMIDE
     Indication: B-CELL LYMPHOMA
     Dosage: 1220 MG ON DAY 1 EACH TREATMENT
     Route: 042
     Dates: start: 20201006, end: 20201030
  15. ETOPOSIDE. [Suspect]
     Active Substance: ETOPOSIDE
     Indication: B-CELL LYMPHOMA
     Dosage: 81 MG, 1X/DAY, ON DAY 1 (D2D3 CANCELED)
     Route: 042
     Dates: start: 20201006, end: 20201006
  16. VALACICLOVIR [Concomitant]
     Active Substance: VALACYCLOVIR HYDROCHLORIDE
     Indication: ANTIVIRAL TREATMENT
     Dosage: 1000 MG, 1X/DAY, UNSPECIFIED
     Route: 048
     Dates: start: 20201006
  17. PREDNISOLONE. [Concomitant]
     Active Substance: PREDNISOLONE
     Indication: PAIN
     Dosage: 60 MG, 1X/DAY, THE MORNING
     Route: 048
     Dates: start: 20200929
  18. OROZAMUDOL [Concomitant]
     Active Substance: TRAMADOL
     Indication: PAIN
     Dosage: 1 TO 3 TABLETS / DAY, 6 HOURS PERIOD TO BE MAINTAINED BETWEEN TWO INTAKES
     Route: 048

REACTIONS (1)
  - Interstitial lung disease [Not Recovered/Not Resolved]

NARRATIVE: CASE EVENT DATE: 20201121
